FAERS Safety Report 23116365 (Version 1)
Quarter: 2023Q4

REPORT INFORMATION
  Report Type: Spontaneous
  Country: CN (occurrence: CN)
  Receive Date: 20231027
  Receipt Date: 20231027
  Transmission Date: 20240109
  Serious: Yes (Hospitalization, Other)
  Sender: FDA-Public Use
  Company Number: CN-ELI_LILLY_AND_COMPANY-CN202310011978

PATIENT
  Age: 65 Year
  Sex: Male
  Weight: 52 kg

DRUGS (8)
  1. RAMUCIRUMAB [Suspect]
     Active Substance: RAMUCIRUMAB
     Indication: Gastric cancer
     Dosage: 412 MG, SINGLE
     Route: 041
     Dates: start: 20231006, end: 20231006
  2. TRASTUZUMAB [Suspect]
     Active Substance: TRASTUZUMAB
     Indication: Gastric cancer
     Dosage: 300 MG, SINGLE
     Route: 041
     Dates: start: 20231006, end: 20231006
  3. TRASTUZUMAB [Suspect]
     Active Substance: TRASTUZUMAB
     Dosage: 9 MG, SINGLE
     Route: 041
     Dates: start: 20231006, end: 20231006
  4. PACLITAXEL [Suspect]
     Active Substance: PACLITAXEL
     Indication: Gastric cancer
     Dosage: 180 MG, SINGLE
     Route: 041
     Dates: start: 20231006, end: 20231006
  5. PACLITAXEL [Suspect]
     Active Substance: PACLITAXEL
     Dosage: 180 MG, SINGLE
     Route: 041
     Dates: start: 20231013, end: 20231013
  6. DEXAMETHASONE SODIUM PHOSPHATE [Concomitant]
     Active Substance: DEXAMETHASONE SODIUM PHOSPHATE
     Indication: Hypersensitivity
     Dosage: 20 MG, SINGLE
     Route: 040
     Dates: start: 20231006, end: 20231006
  7. PROMETHAZINE HYDROCHLORIDE [Concomitant]
     Active Substance: PROMETHAZINE HYDROCHLORIDE
     Indication: Vomiting
     Dosage: 12.5 MG, SINGLE
     Route: 030
     Dates: start: 20231006, end: 20231006
  8. SODIUM CHLORIDE [Concomitant]
     Active Substance: SODIUM CHLORIDE
     Indication: Product used for unknown indication
     Dosage: 250 ML, UNKNOWN
     Dates: start: 20231006

REACTIONS (2)
  - Myelosuppression [Not Recovered/Not Resolved]
  - Malignant neoplasm progression [Not Recovered/Not Resolved]

NARRATIVE: CASE EVENT DATE: 20231014
